FAERS Safety Report 4909896-8 (Version None)
Quarter: 2006Q1

REPORT INFORMATION
  Report Type: 
  Country: None (occurrence: None)
  Receive Date: 20060208
  Receipt Date: 20060124
  Transmission Date: 20060701
  Serious: No
  Sender: FDA-Public Use
  Company Number: US016765

PATIENT
  Age: 7 Year
  Sex: Male

DRUGS (1)
  1. ACTIQ [Suspect]
     Dates: start: 20060124, end: 20060124

REACTIONS (3)
  - ABDOMINAL PAIN UPPER [None]
  - ACCIDENTAL DRUG INTAKE BY CHILD [None]
  - NERVOUSNESS [None]
